FAERS Safety Report 14790159 (Version 2)
Quarter: 2018Q2

REPORT INFORMATION
  Report Type: Spontaneous
  Country: DE (occurrence: DE)
  Receive Date: 20180423
  Receipt Date: 20180516
  Transmission Date: 20180711
  Serious: Yes (Life-Threatening, Hospitalization, Other)
  Sender: FDA-Public Use
  Company Number: DE-VALIDUS PHARMACEUTICALS LLC-DE-2018VAL000662

PATIENT
  Age: 79 Year
  Sex: Female

DRUGS (2)
  1. CEPHALOTHIN                        /00010901/ [Suspect]
     Active Substance: CEPHALOTHIN
     Indication: PRODUCT USED FOR UNKNOWN INDICATION
     Dosage: 8 G, UNK
     Route: 042
  2. FUROSEMIDE. [Suspect]
     Active Substance: FUROSEMIDE
     Indication: PRODUCT USED FOR UNKNOWN INDICATION
     Dosage: 40 MG, UNK
     Route: 042

REACTIONS (2)
  - Renal failure [Not Recovered/Not Resolved]
  - Haemolytic anaemia [Not Recovered/Not Resolved]
